FAERS Safety Report 5626471-0 (Version None)
Quarter: 2008Q1

REPORT INFORMATION
  Report Type: 
  Country: None (occurrence: None)
  Receive Date: 20080214
  Receipt Date: 20080204
  Transmission Date: 20080703
  Serious: Yes (Other)
  Sender: FDA-Public Use
  Company Number: US-ELI_LILLY_AND_COMPANY-US200802000796

PATIENT
  Sex: Female

DRUGS (4)
  1. FORTEO [Suspect]
     Indication: OSTEOPOROSIS
     Dosage: 20 UG, UNK
     Route: 058
     Dates: start: 20060901
  2. DILANTIN [Concomitant]
     Indication: CONVULSION
     Dosage: 400 MG, DAILY (1/D)
     Dates: start: 19940101
  3. CALCIUM [Concomitant]
     Indication: OSTEOPOROSIS
     Dosage: 1500 MG, DAILY (1/D)
  4. VITAMIN D [Concomitant]
     Indication: OSTEOPOROSIS
     Dosage: 1200 IU, DAILY (1/D)

REACTIONS (3)
  - FEMUR FRACTURE [None]
  - PAIN IN EXTREMITY [None]
  - WRIST FRACTURE [None]
